FAERS Safety Report 5192233-4 (Version None)
Quarter: 2006Q4

REPORT INFORMATION
  Report Type: 
  Country: None (occurrence: None)
  Receive Date: 20061227
  Receipt Date: 20061006
  Transmission Date: 20070319
  Serious: Yes (Other)
  Sender: FDA-Public Use
  Company Number: JP-ROCHE-467688

PATIENT
  Age: 84 Year
  Sex: Female

DRUGS (10)
  1. TAMIFLU [Suspect]
     Route: 048
     Dates: start: 20060219, end: 20060223
  2. AMOBAN [Concomitant]
     Dosage: REPORTED AS AMOBAN TABLETS.
     Route: 048
  3. NAPA [Concomitant]
     Dosage: GENERIC REPORTED AS ACETAMINOPHEN.
     Route: 048
     Dates: start: 20060219, end: 20060220
  4. KODESORUVAN [Concomitant]
     Route: 048
  5. NORVASC [Concomitant]
     Route: 048
  6. MICARDIS [Concomitant]
     Route: 048
  7. DIFENIDOL HYDROCHLORIDE [Concomitant]
     Dosage: REPORTED AS MECALMIN (DIFENIDOL HYDROCHLORIDE).
     Route: 048
  8. UNSPECIFIED DRUG [Concomitant]
     Dosage: DRUG REPORTED AS APRICOT KERNEL WATER, GENERIC: APRICOT KERNEL WATER.
     Route: 048
     Dates: start: 20060221, end: 20060225
  9. OPISEZOL CODEINE [Concomitant]
     Dosage: DRUG REPORTED AS OPISEZOL WITHOUT GENERIC NAME.
     Route: 048
     Dates: start: 20060221, end: 20060225
  10. UNSPECIFIED DRUG [Concomitant]
     Dosage: DRUG REPORTED AS PICILLIBACTA (SULBACTAM SODIUM_AMPICILLIN SODIUM). GIVEN ON 18 FEBRUARY AND 23 FEB+
     Route: 042
     Dates: start: 20060218, end: 20060223

REACTIONS (1)
  - DELIRIUM [None]
